FAERS Safety Report 12318588 (Version 2)
Quarter: 2016Q2

REPORT INFORMATION
  Report Type: Spontaneous
  Country: US (occurrence: US)
  Receive Date: 20160429
  Receipt Date: 20160520
  Transmission Date: 20160815
  Serious: Yes (Other)
  Sender: FDA-Public Use
  Company Number: US-ROCHE-1750096

PATIENT
  Age: 7 Year
  Sex: Female

DRUGS (1)
  1. SOMATROPIN [Suspect]
     Active Substance: SOMATROPIN
     Indication: GROWTH HORMONE DEFICIENCY
     Route: 065

REACTIONS (1)
  - Infantile haemangioma [Unknown]
